FAERS Safety Report 7627094-4 (Version None)
Quarter: 2011Q3

REPORT INFORMATION
  Report Type: 
  Country: None (occurrence: None)
  Receive Date: 20110714
  Receipt Date: 20110701
  Transmission Date: 20111222
  Serious: Yes (Other)
  Sender: FDA-Public Use
  Company Number: 1000022025

PATIENT
  Sex: Female
  Weight: 2.96 kg

DRUGS (4)
  1. CITALOPRAM HYDROBROMIDE [Suspect]
     Dosage: 15 MG (15 MG,1 IN 1 D), TRANSPLACENTAL
     Route: 064
  2. PAROXETINE HYDROCHLORIDE [Suspect]
     Dosage: 10 MG (10 MG,1 IN 1 D), TRANSPLACENTAL
     Route: 064
     Dates: start: 20090527
  3. FOLIO FORTE (FOLIC ACID) (FOLIC ACID) [Concomitant]
  4. ALPRAZOLAM [Concomitant]

REACTIONS (3)
  - SMALL FOR DATES BABY [None]
  - FOETAL GROWTH RESTRICTION [None]
  - MATERNAL DRUGS AFFECTING FOETUS [None]
